FAERS Safety Report 7572492-0 (Version None)
Quarter: 2011Q2

REPORT INFORMATION
  Report Type: 
  Country: None (occurrence: None)
  Receive Date: 20110627
  Receipt Date: 20110621
  Transmission Date: 20111010
  Serious: Yes (Hospitalization)
  Sender: FDA-Public Use
  Company Number: US-BRISTOL-MYERS SQUIBB COMPANY-15846314

PATIENT
  Age: 44 Year
  Sex: Female
  Weight: 55 kg

DRUGS (1)
  1. WARFARIN SODIUM [Suspect]
     Dosage: 2MG,3MG: DISCARD 31MAY2011 ,4MG: DISCARD AFTER 10MAY2012 ,ALSO 6MG

REACTIONS (5)
  - SWELLING [None]
  - THROMBOSIS [None]
  - INTERNATIONAL NORMALISED RATIO FLUCTUATION [None]
  - WEIGHT DECREASED [None]
  - PAIN [None]
